FAERS Safety Report 5653058-6 (Version None)
Quarter: 2008Q1

REPORT INFORMATION
  Report Type: 
  Country: None (occurrence: None)
  Receive Date: 20080131
  Receipt Date: 20071012
  Transmission Date: 20080703
  Serious: No
  Sender: FDA-Public Use
  Company Number: US200710003659

PATIENT
  Age: 62 Year
  Sex: Female

DRUGS (5)
  1. BYETTA [Suspect]
     Indication: WEIGHT DECREASED
     Dosage: 5 UG, 2/D, SUBCUTANEOUS ; 10 UG, OTHER, SUBCUTANEOUS
     Route: 058
     Dates: start: 20071012, end: 20071012
  2. BYETTA [Suspect]
     Indication: WEIGHT DECREASED
     Dosage: 5 UG, 2/D, SUBCUTANEOUS ; 10 UG, OTHER, SUBCUTANEOUS
     Route: 058
     Dates: start: 20070501
  3. AMARYL [Concomitant]
  4. GLUCOPHAGE /USA/ (METFORMIN HYDROCHLORIDE) [Concomitant]
  5. LYRICA [Concomitant]

REACTIONS (3)
  - INCORRECT DOSE ADMINISTERED [None]
  - INJECTION SITE EXTRAVASATION [None]
  - INJECTION SITE HAEMORRHAGE [None]
